FAERS Safety Report 26147193 (Version 1)
Quarter: 2025Q4

REPORT INFORMATION
  Report Type: Spontaneous
  Country: EU (occurrence: EU)
  Receive Date: 20251211
  Receipt Date: 20251211
  Transmission Date: 20260117
  Serious: Yes (Life-Threatening)
  Sender: TEVA
  Company Number: None

PATIENT
  Age: 76 Year
  Sex: Female
  Weight: 60 kg

DRUGS (2)
  1. PANTOPRAZOLE [Suspect]
     Active Substance: PANTOPRAZOLE
     Indication: Barrett^s oesophagus
     Dosage: 1 PIECE TWICE A DAY: TABLET MSR/ BRAND NAME NOT SPECIFIED
     Route: 048
     Dates: start: 20201122, end: 20251110
  2. MAGNESIUMSULFAAT [Concomitant]
     Indication: Product used for unknown indication
     Dosage: INFUSION FLUID, 200 MG/ML (MILLIGRAMS PER MILLILITER): INFVLST 200MG/ML (0.8MMOL/ML) / BRAND NAME...
     Route: 065

REACTIONS (3)
  - Hypomagnesaemia [Recovering/Resolving]
  - Hypokalaemia [Recovering/Resolving]
  - Ventricular tachycardia [Recovering/Resolving]
